FAERS Safety Report 14554848 (Version 1)
Quarter: 2018Q1

REPORT INFORMATION
  Report Type: Spontaneous
  Country: CA (occurrence: CA)
  Receive Date: 20180220
  Receipt Date: 20180220
  Transmission Date: 20180509
  Serious: Yes (Death, Other)
  Sender: FDA-Public Use
  Company Number: CA-GILEAD-2018-0321733

PATIENT
  Age: 63 Year
  Sex: Male

DRUGS (6)
  1. TRUVADA [Suspect]
     Active Substance: EMTRICITABINE\TENOFOVIR DISOPROXIL FUMARATE
     Indication: ANTIRETROVIRAL THERAPY
     Dosage: 1 DF, QD
     Route: 065
  2. NORVIR [Concomitant]
     Active Substance: RITONAVIR
  3. MYCOBUTIN [Concomitant]
     Active Substance: RIFABUTIN
  4. REYATAZ [Concomitant]
     Active Substance: ATAZANAVIR SULFATE
  5. ETIBI [Concomitant]
     Active Substance: ETHAMBUTOL HYDROCHLORIDE
  6. CLARITHROMYCIN. [Concomitant]
     Active Substance: CLARITHROMYCIN

REACTIONS (3)
  - Acute kidney injury [Fatal]
  - Blood creatinine increased [Fatal]
  - Renal impairment [Fatal]
